FAERS Safety Report 25264368 (Version 1)
Quarter: 2025Q2

REPORT INFORMATION
  Report Type: Report from Study
  Country: US (occurrence: US)
  Receive Date: 20250502
  Receipt Date: 20250502
  Transmission Date: 20250717
  Serious: Yes (Other)
  Sender: JOHNSON AND JOHNSON
  Company Number: US-JNJFOC-20250428083

PATIENT
  Age: 59 Year
  Sex: Female

DRUGS (8)
  1. SPRAVATO [Suspect]
     Active Substance: ESKETAMINE
     Indication: Depression
     Route: 045
     Dates: start: 20250405, end: 20250412
  2. SPRAVATO [Suspect]
     Active Substance: ESKETAMINE
     Route: 045
     Dates: start: 20250419, end: 20250419
  3. SPRAVATO [Suspect]
     Active Substance: ESKETAMINE
     Route: 045
     Dates: start: 20250308, end: 20250322
  4. GABAPENTIN [Concomitant]
     Active Substance: GABAPENTIN
  5. LUNESTA [Concomitant]
     Active Substance: ESZOPICLONE
  6. ATIVAN [Concomitant]
     Active Substance: LORAZEPAM
  7. REMERON [Concomitant]
     Active Substance: MIRTAZAPINE
  8. PRAZOSIN [Concomitant]
     Active Substance: PRAZOSIN

REACTIONS (2)
  - Sedation [Recovered/Resolved]
  - Dissociation [Recovered/Resolved]

NARRATIVE: CASE EVENT DATE: 20250419
